FAERS Safety Report 8045274-3 (Version None)
Quarter: 2012Q1

REPORT INFORMATION
  Report Type: 
  Country: None (occurrence: None)
  Receive Date: 20120113
  Receipt Date: 20120109
  Transmission Date: 20120608
  Serious: Yes (Hospitalization)
  Sender: FDA-Public Use
  Company Number: NL-PFIZER INC-2012006471

PATIENT
  Age: 65 Year
  Sex: Female

DRUGS (1)
  1. DOXYCYCLINE HYCLATE [Suspect]
     Indication: RESPIRATORY TRACT INFECTION
     Dosage: 100 MG, 1X/DAY
     Dates: start: 20111212

REACTIONS (1)
  - JAUNDICE [None]
